FAERS Safety Report 6089718-5 (Version None)
Quarter: 2009Q1

REPORT INFORMATION
  Report Type: 
  Country: None (occurrence: None)
  Receive Date: 20090220
  Receipt Date: 20090220
  Transmission Date: 20090719
  Serious: Yes (Other)
  Sender: FDA-Public Use
  Company Number: None

PATIENT
  Sex: Female
  Weight: 52.1637 kg

DRUGS (1)
  1. TOFRANIL [Suspect]
     Indication: MAJOR DEPRESSION
     Dosage: 10 MG ONCE DAILY PO (DURATION: A WEEK)
     Route: 048
     Dates: start: 19980120, end: 19980202

REACTIONS (1)
  - RASH [None]
